FAERS Safety Report 23539659 (Version 2)
Quarter: 2024Q1

REPORT INFORMATION
  Report Type: Spontaneous
  Country: GB (occurrence: GB)
  Receive Date: 20240219
  Receipt Date: 20240301
  Transmission Date: 20240410
  Serious: Yes (Other)
  Sender: FDA-Public Use
  Company Number: None

PATIENT
  Age: 64 Year
  Sex: Female
  Weight: 55 kg

DRUGS (14)
  1. LEVETIRACETAM [Suspect]
     Active Substance: LEVETIRACETAM
     Indication: Essential tremor
     Dosage: UNK
     Route: 065
     Dates: start: 20240104, end: 20240106
  2. AMLODIPINE [Concomitant]
     Active Substance: AMLODIPINE BESYLATE
     Dosage: 1 DOSAGE FORM, QD
     Route: 065
     Dates: start: 20231026
  3. ASPIRIN [Concomitant]
     Active Substance: ASPIRIN
     Dosage: 1 DOSAGE FORM, QD
     Route: 065
     Dates: start: 20231026
  4. ATORVASTATIN [Concomitant]
     Active Substance: ATORVASTATIN
     Dosage: UNK, PM
     Route: 065
     Dates: start: 20231026
  5. CARVEDILOL [Concomitant]
     Active Substance: CARVEDILOL
     Dosage: 1 DOSAGE FORM
     Route: 065
     Dates: start: 20231026
  6. CARVEDILOL [Concomitant]
     Active Substance: CARVEDILOL
     Dosage: 2 DOSAGE FORM, QD
     Route: 066
     Dates: start: 20231026
  7. GABAPENTIN [Concomitant]
     Active Substance: GABAPENTIN
     Dosage: 1 DOSAGE FORM
     Route: 065
     Dates: start: 20231026
  8. GABAPENTIN [Concomitant]
     Active Substance: GABAPENTIN
     Dosage: 3 DOSAGE FORM, QD
     Route: 065
     Dates: start: 20231026
  9. NITROGLYCERIN [Concomitant]
     Active Substance: NITROGLYCERIN
     Dosage: 1 DOSAGE FORM, (PUFF)
     Route: 065
     Dates: start: 20211115
  10. BUTYLSCOPOLAMINE BROMIDE [Concomitant]
     Active Substance: BUTYLSCOPOLAMINE BROMIDE
     Dosage: 2 DOSAGE FORM
     Route: 065
     Dates: start: 20220818, end: 20231218
  11. BUTYLSCOPOLAMINE BROMIDE [Concomitant]
     Active Substance: BUTYLSCOPOLAMINE BROMIDE
     Dosage: 8 DOSAGE FORM (AS NECESSARY)
     Route: 065
     Dates: start: 20220818, end: 20231218
  12. OMEPRAZOLE [Concomitant]
     Active Substance: OMEPRAZOLE
     Dosage: 1 DOSAGE FORM, QD
     Route: 065
     Dates: start: 20231026
  13. ACETAMINOPHEN [Concomitant]
     Active Substance: ACETAMINOPHEN
     Dosage: TAKE ONE OR TWO TABLETS UP TO 4 TIMES/DAY( USUA...
     Route: 065
     Dates: start: 20231026
  14. PERINDOPRIL ERBUMINE [Concomitant]
     Active Substance: PERINDOPRIL ERBUMINE
     Dosage: 1 DOSAGE FORM, QD
     Route: 065
     Dates: start: 20231026

REACTIONS (2)
  - Suicidal ideation [Recovered/Resolved]
  - Morbid thoughts [Recovered/Resolved]

NARRATIVE: CASE EVENT DATE: 20240104
